FAERS Safety Report 13778910 (Version 6)
Quarter: 2018Q2

REPORT INFORMATION
  Report Type: Spontaneous
  Country: US (occurrence: US)
  Receive Date: 20170721
  Receipt Date: 20180405
  Transmission Date: 20180711
  Serious: No
  Sender: FDA-Public Use
  Company Number: US-PFIZER INC-2017314772

PATIENT
  Age: 57 Year
  Sex: Female

DRUGS (1)
  1. IBRANCE [Suspect]
     Active Substance: PALBOCICLIB
     Indication: BREAST CANCER FEMALE
     Dosage: 100 MG, 1X/DAY [ONCE DAILY]
     Route: 048
     Dates: start: 20170504

REACTIONS (6)
  - Diarrhoea [Unknown]
  - Full blood count decreased [Unknown]
  - Headache [Unknown]
  - Weight decreased [Unknown]
  - Pelvic mass [Unknown]
  - Nausea [Unknown]

NARRATIVE: CASE EVENT DATE: 20170718
